FAERS Safety Report 25087102 (Version 2)
Quarter: 2025Q4

REPORT INFORMATION
  Report Type: Spontaneous
  Country: JP (occurrence: JP)
  Receive Date: 20250318
  Receipt Date: 20251023
  Transmission Date: 20260117
  Serious: Yes (Other)
  Sender: BRISTOL-MYERS SQUIBB COMPANY
  Company Number: JP-BRISTOL-MYERS SQUIBB COMPANY-2025-036989

PATIENT
  Age: 7 Decade
  Sex: Male

DRUGS (3)
  1. REVLIMID [Suspect]
     Active Substance: LENALIDOMIDE
     Indication: Plasma cell myeloma
  2. LENADEX [Suspect]
     Active Substance: DEXAMETHASONE ACETATE
     Indication: Plasma cell myeloma
  3. BORTEZOMIB [Suspect]
     Active Substance: BORTEZOMIB
     Indication: Plasma cell myeloma

REACTIONS (9)
  - Rash pustular [Recovering/Resolving]
  - Staphylococcal infection [Recovering/Resolving]
  - Back pain [Unknown]
  - Serositis [Recovering/Resolving]
  - Arthritis [Recovering/Resolving]
  - Eye symptom [Unknown]
  - Generalised pustular psoriasis [Unknown]
  - Dermatitis exfoliative generalised [Recovering/Resolving]
  - Lung opacity [Unknown]
